FAERS Safety Report 4733482-6 (Version None)
Quarter: 2005Q3

REPORT INFORMATION
  Report Type: 
  Country: None (occurrence: None)
  Receive Date: 20050801
  Receipt Date: 20050725
  Transmission Date: 20060218
  Serious: Yes (Other)
  Sender: FDA-Public Use
  Company Number: GBWYE856525JUL05

PATIENT
  Age: 27 Year
  Sex: Male

DRUGS (4)
  1. IBUPROFEN [Suspect]
  2. CODEINE (CODEINE, , O) [Suspect]
  3. ETHANOL (ETHANOL, , 0) [Suspect]
  4. PAROXETINE HCL [Suspect]
     Dosage: 20-50MG FREQUENCY UNKNOWN
     Dates: start: 19990901, end: 20021201

REACTIONS (10)
  - AGGRESSION [None]
  - ALCOHOL USE [None]
  - DRUG ABUSER [None]
  - DRUG INTERACTION [None]
  - INTENTIONAL MISUSE [None]
  - OVERDOSE [None]
  - SEXUAL DYSFUNCTION [None]
  - SMOKER [None]
  - SOCIAL PHOBIA [None]
  - SUICIDAL IDEATION [None]
